FAERS Safety Report 6194615-0 (Version None)
Quarter: 2009Q2

REPORT INFORMATION
  Report Type: 
  Country: None (occurrence: None)
  Receive Date: 20090515
  Receipt Date: 20090515
  Transmission Date: 20091009
  Serious: Yes (Hospitalization)
  Sender: FDA-Public Use
  Company Number: None

PATIENT
  Age: 55 Year
  Sex: Male
  Weight: 83 kg

DRUGS (1)
  1. NALTREXONE HYDROCHLORIDE [Suspect]
     Indication: ALCOHOLISM
     Dosage: 50 MG EVERY DAY PO
     Route: 048
     Dates: start: 20090223, end: 20090311

REACTIONS (2)
  - HALLUCINATION [None]
  - HALLUCINATIONS, MIXED [None]
